FAERS Safety Report 25321954 (Version 1)
Quarter: 2025Q2

REPORT INFORMATION
  Report Type: Spontaneous
  Country: US (occurrence: US)
  Receive Date: 20250516
  Receipt Date: 20250516
  Transmission Date: 20250716
  Serious: No
  Sender: DOHMEN
  Company Number: US-PROTEGA PHARMACEUTICALS, LLC-2024PRO000007

PATIENT

DRUGS (1)
  1. ROXYBOND [Suspect]
     Active Substance: OXYCODONE HYDROCHLORIDE
     Indication: Product used for unknown indication
     Route: 065

REACTIONS (3)
  - Throat irritation [Unknown]
  - Brain fog [Unknown]
  - Dysphonia [Unknown]
